FAERS Safety Report 10949467 (Version 2)
Quarter: 2015Q2

REPORT INFORMATION
  Report Type: Spontaneous
  Country: BR (occurrence: BR)
  Receive Date: 20150324
  Receipt Date: 20150430
  Transmission Date: 20150821
  Serious: Yes (Hospitalization, Other)
  Sender: FDA-Public Use
  Company Number: BR-PFIZER INC-2015100790

PATIENT
  Age: 51 Year
  Sex: Female
  Weight: 60 kg

DRUGS (5)
  1. CELEBRA [Suspect]
     Active Substance: CELECOXIB
     Indication: ARTHRALGIA
  2. LIPITOR [Suspect]
     Active Substance: ATORVASTATIN CALCIUM
     Indication: BLOOD CHOLESTEROL DECREASED
     Dosage: 20 MG, DAILY
     Route: 048
     Dates: start: 2004
  3. LOSARTAN [Concomitant]
     Active Substance: LOSARTAN
     Indication: CARDIAC DISORDER
     Dosage: UNK
     Dates: start: 2004
  4. CELEBRA [Suspect]
     Active Substance: CELECOXIB
     Indication: PAIN
     Dosage: 200 MG, 2X/DAY
     Route: 048
     Dates: start: 1995
  5. MAREVAN [Concomitant]
     Active Substance: WARFARIN SODIUM
     Indication: ANTICOAGULANT THERAPY
     Dosage: 1 OR 0.5 TABLET, DAILY
     Dates: start: 2000

REACTIONS (5)
  - Rheumatoid arthritis [Recovered/Resolved]
  - Gait disturbance [Unknown]
  - Alopecia [Unknown]
  - Myocardial infarction [Unknown]
  - Varicose vein [Unknown]

NARRATIVE: CASE EVENT DATE: 2004
